FAERS Safety Report 5811713-9 (Version None)
Quarter: 2008Q3

REPORT INFORMATION
  Report Type: 
  Country: None (occurrence: None)
  Receive Date: 20080716
  Receipt Date: 20080709
  Transmission Date: 20090109
  Serious: Yes (Other)
  Sender: FDA-Public Use
  Company Number: A0737779A

PATIENT
  Sex: Male

DRUGS (8)
  1. WELLBUTRIN [Suspect]
     Indication: DEPRESSION
     Route: 048
     Dates: start: 20031001, end: 20070101
  2. XANAX [Suspect]
     Indication: DEPRESSION
     Route: 048
     Dates: start: 20031001, end: 20070101
  3. SEROQUEL [Suspect]
     Indication: DRUG USE FOR UNKNOWN INDICATION
     Dates: start: 20031001, end: 20070101
  4. LEXAPRO [Suspect]
     Indication: DRUG USE FOR UNKNOWN INDICATION
     Dates: start: 20031001, end: 20070101
  5. RESTORIL [Suspect]
     Indication: DRUG USE FOR UNKNOWN INDICATION
     Dates: start: 20031001
  6. CYMBALTA [Suspect]
     Indication: DRUG USE FOR UNKNOWN INDICATION
     Dates: start: 20071001
  7. BLOOD PRESSURE MEDICATION [Concomitant]
  8. THYROID MEDICATION [Concomitant]

REACTIONS (27)
  - ANXIETY [None]
  - BLOOD CHOLESTEROL INCREASED [None]
  - BLOOD PRESSURE INCREASED [None]
  - BLOOD TRIGLYCERIDES INCREASED [None]
  - BRUXISM [None]
  - CONVULSION [None]
  - DEPRESSION [None]
  - DYSKINESIA [None]
  - FEELING ABNORMAL [None]
  - HALLUCINATION [None]
  - HEADACHE [None]
  - HYPERHIDROSIS [None]
  - INSOMNIA [None]
  - INTENTIONAL OVERDOSE [None]
  - NIGHTMARE [None]
  - PAIN [None]
  - PERFORMANCE STATUS DECREASED [None]
  - RENAL FAILURE [None]
  - ROAD TRAFFIC ACCIDENT [None]
  - SEDATION [None]
  - SLEEP APNOEA SYNDROME [None]
  - STRESS [None]
  - SUICIDAL IDEATION [None]
  - SUICIDE ATTEMPT [None]
  - TARDIVE DYSKINESIA [None]
  - THYROID DISORDER [None]
  - WEIGHT DECREASED [None]
